FAERS Safety Report 7546966-2 (Version None)
Quarter: 2011Q2

REPORT INFORMATION
  Report Type: 
  Country: None (occurrence: None)
  Receive Date: 20110614
  Receipt Date: 20110428
  Transmission Date: 20111010
  Serious: Yes (Hospitalization)
  Sender: FDA-Public Use
  Company Number: DE-SANOFI-AVENTIS-2011SA026279

PATIENT
  Age: 67 Year
  Sex: Male

DRUGS (8)
  1. OXALIPLATIN [Suspect]
     Route: 041
     Dates: start: 20091201, end: 20091201
  2. FLUOROURACIL [Suspect]
     Route: 041
     Dates: start: 20110413, end: 20110413
  3. LEUCOVORIN CALCIUM [Suspect]
     Route: 041
     Dates: start: 20090901, end: 20090901
  4. LEUCOVORIN CALCIUM [Suspect]
     Route: 041
     Dates: start: 20110413, end: 20110413
  5. CETUXIMAB [Suspect]
     Route: 041
     Dates: start: 20090901, end: 20090901
  6. OXALIPLATIN [Suspect]
     Route: 041
     Dates: start: 20090901, end: 20090901
  7. FLUOROURACIL [Suspect]
     Route: 041
     Dates: start: 20090901, end: 20090901
  8. CETUXIMAB [Suspect]
     Route: 041
     Dates: start: 20110413, end: 20110413

REACTIONS (3)
  - HYPOAESTHESIA [None]
  - TRANSIENT ISCHAEMIC ATTACK [None]
  - HYPOAESTHESIA ORAL [None]
